FAERS Safety Report 16003879 (Version 1)
Quarter: 2019Q1

REPORT INFORMATION
  Report Type: Spontaneous
  Country: US (occurrence: US)
  Receive Date: 20190225
  Receipt Date: 20190225
  Transmission Date: 20190418
  Serious: Yes (Other)
  Sender: FDA-Public Use
  Company Number: US-HIKMA PHARMACEUTICALS USA INC.-US-H14001-19-01175

PATIENT
  Age: 46 Year
  Sex: Male

DRUGS (3)
  1. FLUOROURACIL. [Suspect]
     Active Substance: FLUOROURACIL
     Indication: OESOPHAGEAL SQUAMOUS CELL CARCINOMA
     Route: 065
  2. OXALIPLATIN. [Suspect]
     Active Substance: OXALIPLATIN
     Indication: OESOPHAGEAL SQUAMOUS CELL CARCINOMA
     Route: 065
  3. FOLINIC ACID [Suspect]
     Active Substance: LEUCOVORIN
     Indication: OESOPHAGEAL SQUAMOUS CELL CARCINOMA
     Route: 065

REACTIONS (3)
  - Haematemesis [Recovered/Resolved]
  - Oesophageal stenosis [Recovered/Resolved]
  - Oesophagitis [Recovered/Resolved]
